FAERS Safety Report 19264567 (Version 1)
Quarter: 2021Q2

REPORT INFORMATION
  Report Type: Spontaneous
  Country: US (occurrence: US)
  Receive Date: 20210516
  Receipt Date: 20210516
  Transmission Date: 20210717
  Serious: Yes (Hospitalization, Other)
  Sender: FDA-Public Use
  Company Number: None

PATIENT
  Age: 23 Year
  Sex: Female
  Weight: 58.97 kg

DRUGS (4)
  1. MARIJUANA [Concomitant]
     Active Substance: CANNABIS SATIVA SUBSP. INDICA TOP
  2. TYLENOL [Concomitant]
     Active Substance: ACETAMINOPHEN
  3. PRENATAL VITAMINS [Concomitant]
     Active Substance: VITAMINS
  4. PARAGARD T 380A [Suspect]
     Active Substance: COPPER
     Dates: start: 20180613

REACTIONS (3)
  - Haemorrhage [None]
  - Pregnancy with contraceptive device [None]
  - Exposure during pregnancy [None]

NARRATIVE: CASE EVENT DATE: 20210515
